FAERS Safety Report 8099311-0 (Version None)
Quarter: 2012Q1

REPORT INFORMATION
  Report Type: 
  Country: None (occurrence: None)
  Receive Date: 20120131
  Receipt Date: 20120125
  Transmission Date: 20120608
  Serious: Yes (Hospitalization)
  Sender: FDA-Public Use
  Company Number: GB-PFIZER INC-2011131998

PATIENT
  Age: 70 Year
  Sex: Male

DRUGS (2)
  1. CIPROFLOXACIN [Concomitant]
     Dosage: 250 MG, 2X/DAY
  2. SUNITINIB MALATE [Suspect]
     Dosage: 25 MG, UNK
     Dates: start: 20110330

REACTIONS (1)
  - UROSEPSIS [None]
